FAERS Safety Report 9105453 (Version 2)
Quarter: 2013Q1

REPORT INFORMATION
  Report Type: Spontaneous
  Country: US (occurrence: US)
  Receive Date: 20130220
  Receipt Date: 20130314
  Transmission Date: 20140127
  Serious: Yes (Congenital Anomaly, Other)
  Sender: FDA-Public Use
  Company Number: US-PFIZER INC-2013063813

PATIENT
  Sex: Male

DRUGS (19)
  1. ZOLOFT [Suspect]
     Dosage: UNK
     Route: 064
     Dates: start: 20080116, end: 20080818
  2. OXYCODONE [Concomitant]
     Dosage: UNK
     Route: 064
  3. ORTHO TRI-CYCLEN LO [Concomitant]
     Dosage: UNK
     Route: 064
  4. CERON [Concomitant]
     Dosage: UNK
     Route: 064
  5. PRENATAL VITAMINS [Concomitant]
     Dosage: UNK
     Route: 064
  6. AZITHROMYCIN [Concomitant]
     Dosage: UNK
     Route: 064
  7. CEPHALEXIN [Concomitant]
     Dosage: UNK
     Route: 064
  8. DOXYCYCLINE [Concomitant]
     Dosage: UNK
     Route: 064
  9. FLUOCINOLONE [Concomitant]
     Dosage: UNK
     Route: 064
  10. CLINDAMYCIN [Concomitant]
     Dosage: UNK
     Route: 064
  11. IBUPROFEN [Concomitant]
     Dosage: UNK
     Route: 064
  12. METHYLPREDNISOLONE [Concomitant]
     Dosage: UNK
     Route: 064
  13. ACETAMINOPHEN W/CODEINE [Concomitant]
     Dosage: UNK
     Route: 064
  14. DIPHENHYDRAMINE [Concomitant]
     Dosage: UNK
     Route: 064
  15. FERROUS SULFATE [Concomitant]
     Dosage: UNK
     Route: 064
  16. METRONIDAZOLE [Concomitant]
     Dosage: UNK
     Route: 064
  17. SERTRALINE [Concomitant]
     Dosage: UNK
     Route: 064
  18. VITAFOL-OB [Concomitant]
     Dosage: UNK
     Route: 064
  19. VEROTIN-GR [Concomitant]
     Dosage: UNK
     Route: 064

REACTIONS (2)
  - Maternal exposure during pregnancy [Unknown]
  - Talipes [Unknown]
